FAERS Safety Report 7803886-3 (Version None)
Quarter: 2011Q4

REPORT INFORMATION
  Report Type: 
  Country: None (occurrence: None)
  Receive Date: 20111010
  Receipt Date: 20111004
  Transmission Date: 20120403
  Serious: Yes (Other)
  Sender: FDA-Public Use
  Company Number: IT-PFIZER INC-2011237335

PATIENT
  Age: 64 Year
  Sex: Female

DRUGS (3)
  1. TACHIDOL [Concomitant]
     Dosage: 500+30 MG, 1 DF, 1X/DAY
     Route: 048
     Dates: start: 20110701, end: 20110930
  2. SUTENT [Suspect]
     Indication: RENAL CELL CARCINOMA
     Dosage: 50 MG, 1X/DAY
     Route: 048
     Dates: start: 20110819
  3. LORAZEPAM [Concomitant]
     Dosage: 1 MG, 1X/DAY
     Route: 048
     Dates: start: 20110701, end: 20110930

REACTIONS (4)
  - PROTEINURIA [None]
  - HYPERPYREXIA [None]
  - THROMBOCYTOPENIA [None]
  - HAEMATURIA [None]
